FAERS Safety Report 6962784-8 (Version None)
Quarter: 2010Q3

REPORT INFORMATION
  Report Type: 
  Country: None (occurrence: None)
  Receive Date: 20100902
  Receipt Date: 20100827
  Transmission Date: 20110219
  Serious: Yes (Hospitalization, Other)
  Sender: FDA-Public Use
  Company Number: AR-BRISTOL-MYERS SQUIBB COMPANY-15260417

PATIENT
  Age: 47 Year
  Sex: Female

DRUGS (7)
  1. ABATACEPT [Suspect]
     Indication: RHEUMATOID ARTHRITIS
     Dosage: INTERRUPTED ON 24AUG10 NO OF COURSES 55
     Route: 058
     Dates: start: 20090811
  2. METHOTREXATE [Suspect]
     Indication: RHEUMATOID ARTHRITIS
     Dosage: CONTINUED
     Dates: start: 20080828
  3. FOLIC ACID [Concomitant]
     Dates: start: 20080814
  4. OMEPRAZOLE [Concomitant]
     Dates: start: 20080814
  5. DICLOFENAC [Concomitant]
     Dates: start: 20080814
  6. PHENYTOIN [Concomitant]
     Dates: start: 19990101
  7. PHENOBARBITAL [Concomitant]
     Dates: start: 19990101

REACTIONS (1)
  - CHOLECYSTITIS ACUTE [None]
